FAERS Safety Report 16811046 (Version 2)
Quarter: 2020Q1

REPORT INFORMATION
  Report Type: Report from Study
  Country: US (occurrence: US)
  Receive Date: 20190916
  Receipt Date: 20200306
  Transmission Date: 20200409
  Serious: Yes (Other)
  Sender: FDA-Public Use
  Company Number: PHEH2019US037687

PATIENT
  Sex: Female

DRUGS (1)
  1. COSENTYX [Suspect]
     Active Substance: SECUKINUMAB
     Indication: PSORIASIS
     Dosage: 300 MG, QW (ONCE WEEKLY FOR 5 WEEKS THEN ONCE)
     Route: 058
     Dates: start: 20190816

REACTIONS (4)
  - Gastrooesophageal reflux disease [Unknown]
  - Large intestine polyp [Unknown]
  - Gastrointestinal inflammation [Unknown]
  - Gastrointestinal tract irritation [Unknown]
